FAERS Safety Report 6123623-0 (Version None)
Quarter: 2009Q1

REPORT INFORMATION
  Report Type: 
  Country: None (occurrence: None)
  Receive Date: 20090317
  Receipt Date: 20090317
  Transmission Date: 20090719
  Serious: Yes (Other)
  Sender: FDA-Public Use
  Company Number: None

PATIENT
  Sex: Male
  Weight: 90.7194 kg

DRUGS (1)
  1. RAMIPRIL [Suspect]
     Indication: HYPERTENSION
     Dosage: 5MG ONCE QD PO
     Route: 048
     Dates: start: 20080701, end: 20080702

REACTIONS (4)
  - COUGH [None]
  - PRODUCT QUALITY ISSUE [None]
  - RASH PRURITIC [None]
  - SNEEZING [None]
